FAERS Safety Report 15475705 (Version 1)
Quarter: 2018Q4

REPORT INFORMATION
  Report Type: Spontaneous
  Country: US (occurrence: US)
  Receive Date: 20181008
  Receipt Date: 20181008
  Transmission Date: 20190205
  Serious: No
  Sender: FDA-Public Use
  Company Number: US-BIOGEN-2018BI00640203

PATIENT
  Age: 49 Year
  Sex: Female

DRUGS (2)
  1. TYSABRI [Suspect]
     Active Substance: NATALIZUMAB
     Indication: MULTIPLE SCLEROSIS
     Route: 042
     Dates: start: 20071204
  2. TYSABRI [Suspect]
     Active Substance: NATALIZUMAB
     Route: 065
     Dates: start: 20180101

REACTIONS (12)
  - Blood sodium decreased [Unknown]
  - Multiple sclerosis relapse [Unknown]
  - Delirium [Unknown]
  - Migraine [Recovered/Resolved]
  - Red blood cell count decreased [Unknown]
  - Asthenia [Unknown]
  - Fatigue [Unknown]
  - Nausea [Unknown]
  - Prescribed underdose [Unknown]
  - Thyroid disorder [Unknown]
  - Central nervous system lesion [Unknown]
  - Tremor [Unknown]

NARRATIVE: CASE EVENT DATE: 20180101
